FAERS Safety Report 7479389-5 (Version None)
Quarter: 2011Q2

REPORT INFORMATION
  Report Type: 
  Country: None (occurrence: None)
  Receive Date: 20110513
  Receipt Date: 20110511
  Transmission Date: 20111010
  Serious: Yes (Death, Hospitalization, Other)
  Sender: FDA-Public Use
  Company Number: JP-PFIZER INC-2011099239

PATIENT
  Age: 57 Year
  Sex: Female

DRUGS (5)
  1. BIOFERMIN [Concomitant]
  2. ALDACTONE [Suspect]
     Dosage: UNK
  3. PAXIL [Concomitant]
  4. LORAZEPAM [Suspect]
     Indication: DEPRESSION
     Dosage: 0.5 MG, 2X/DAY
     Dates: start: 20110201
  5. RESLIN [Concomitant]

REACTIONS (3)
  - MULTI-ORGAN FAILURE [None]
  - COMA [None]
  - ENCEPHALOPATHY [None]
